FAERS Safety Report 18408071 (Version 18)
Quarter: 2023Q4

REPORT INFORMATION
  Report Type: Spontaneous
  Country: CA (occurrence: CA)
  Receive Date: 20201021
  Receipt Date: 20231218
  Transmission Date: 20240110
  Serious: Yes (Other)
  Sender: FDA-Public Use
  Company Number: CA-CELLTRION INC.-2019CA026906

PATIENT

DRUGS (45)
  1. INFLECTRA [Suspect]
     Active Substance: INFLIXIMAB-DYYB
     Indication: Rheumatoid arthritis
     Dosage: 300 MG, AT 0, 2, 6 WEEKS, THEN EVERY 8 WEEKS
     Route: 042
     Dates: start: 20191108, end: 20200724
  2. INFLECTRA [Suspect]
     Active Substance: INFLIXIMAB-DYYB
     Dosage: 300 MG, Q 0, 2, 6 WEEKS, THEN EVERY 8 WEEKS
     Route: 042
     Dates: start: 20191108, end: 20200724
  3. INFLECTRA [Suspect]
     Active Substance: INFLIXIMAB-DYYB
     Dosage: 300 MG, AT 0, 2, 6 WEEKS, THEN EVERY 8 WEEKS
     Route: 042
     Dates: start: 20191122
  4. INFLECTRA [Suspect]
     Active Substance: INFLIXIMAB-DYYB
     Dosage: 300 MG, AT 0, 2, 6 WEEKS, THEN EVERY 8 WEEKS
     Route: 042
     Dates: start: 20191228
  5. INFLECTRA [Suspect]
     Active Substance: INFLIXIMAB-DYYB
     Dosage: 300 MG, AT 0, 2, 6 WEEKS, THEN EVERY 8 WEEKS
     Route: 042
     Dates: start: 20200219
  6. INFLECTRA [Suspect]
     Active Substance: INFLIXIMAB-DYYB
     Dosage: 300 MG, AT 0, 2, 6 WEEKS, THEN EVERY 8 WEEKS
     Route: 042
     Dates: start: 20200417
  7. INFLECTRA [Suspect]
     Active Substance: INFLIXIMAB-DYYB
     Dosage: 300 MG, AT 0, 2, 6 WEEKS, THEN EVERY 8 WEEKS
     Route: 042
     Dates: start: 20200612, end: 20200724
  8. INFLECTRA [Suspect]
     Active Substance: INFLIXIMAB-DYYB
     Dosage: 300 MG (3 MG/KG WITH ROUND UP DOSE), EVERY 6 WEEKS
     Route: 042
     Dates: start: 20200904
  9. INFLECTRA [Suspect]
     Active Substance: INFLIXIMAB-DYYB
     Dosage: 300 MG (3 MG/KG WITH ROUND UP DOSE), EVERY 6 WEEKS
     Route: 042
     Dates: start: 20201106
  10. INFLECTRA [Suspect]
     Active Substance: INFLIXIMAB-DYYB
     Dosage: 300 MG (3 MG/KG WITH ROUND UP DOSE), EVERY 6 WEEKS
     Route: 042
     Dates: start: 20201218
  11. INFLECTRA [Suspect]
     Active Substance: INFLIXIMAB-DYYB
     Dosage: 300 MG (3 MG/KG WITH ROUND UP DOSE), EVERY 6 WEEKS
     Route: 042
     Dates: start: 20210129
  12. INFLECTRA [Suspect]
     Active Substance: INFLIXIMAB-DYYB
     Dosage: 300 MG (3 MG/KG WITH ROUND UP DOSE), EVERY 6 WEEKS
     Route: 042
     Dates: start: 20210430
  13. INFLECTRA [Suspect]
     Active Substance: INFLIXIMAB-DYYB
     Dosage: 300 MG (3 MG/KG WITH ROUND UP DOSE), EVERY 6 WEEKS
     Route: 042
     Dates: start: 20210625
  14. INFLECTRA [Suspect]
     Active Substance: INFLIXIMAB-DYYB
     Dosage: 300 MG (3 MG/KG WITH ROUND UP DOSE), EVERY 6 WEEKS
     Route: 042
     Dates: start: 20210915
  15. INFLECTRA [Suspect]
     Active Substance: INFLIXIMAB-DYYB
     Dosage: 300 MG (3 MG/KG WITH ROUND UP DOSE), EVERY 6 WEEKS
     Route: 042
     Dates: start: 20211119
  16. INFLECTRA [Suspect]
     Active Substance: INFLIXIMAB-DYYB
     Dosage: 300 MG (3 MG/KG WITH ROUND UP DOSE), EVERY 6 WEEKS
     Route: 042
     Dates: start: 20220105
  17. INFLECTRA [Suspect]
     Active Substance: INFLIXIMAB-DYYB
     Dosage: 300 MG (3 MG/KG WITH ROUND UP DOSE), EVERY 6 WEEKS
     Route: 042
     Dates: start: 20220304
  18. INFLECTRA [Suspect]
     Active Substance: INFLIXIMAB-DYYB
     Dosage: 300 MG (3 MG/KG WITH ROUND UP DOSE), EVERY 6 WEEKS
     Route: 042
     Dates: start: 20220527
  19. INFLECTRA [Suspect]
     Active Substance: INFLIXIMAB-DYYB
     Dosage: 300 MG, (3 MG/KG WITH ROUND UP DOSE), EVERY 6 WEEKS
     Route: 042
     Dates: start: 20220819
  20. INFLECTRA [Suspect]
     Active Substance: INFLIXIMAB-DYYB
     Dosage: 300 MG, (3 MG/KG WITH ROUND UP DOSE), EVERY 6 WEEKS
     Route: 042
     Dates: start: 20221011
  21. INFLECTRA [Suspect]
     Active Substance: INFLIXIMAB-DYYB
     Dosage: 300 MG (3 MG/KG WITH ROUND UP DOSE) EVERY 6 WEEKS
     Route: 042
     Dates: start: 20230810
  22. INFLECTRA [Suspect]
     Active Substance: INFLIXIMAB-DYYB
     Dosage: 400 MG, 5 WEEKS AND 4 DAYS,(EVERY 6 WEEKS)
     Route: 042
     Dates: start: 20230918
  23. INFLECTRA [Suspect]
     Active Substance: INFLIXIMAB-DYYB
     Dosage: 400 MG, 5 WEEKS AND 4 DAYS,(EVERY 6 WEEKS)
     Route: 042
     Dates: start: 20231030
  24. AMITRIPTYLINE [Concomitant]
     Active Substance: AMITRIPTYLINE
     Indication: Pain
     Dosage: 25 MG, 1X/DAY (PM)
     Dates: start: 201705
  25. AMITRIPTYLINE [Concomitant]
     Active Substance: AMITRIPTYLINE
     Indication: Affective disorder
  26. ATENOLOL [Concomitant]
     Active Substance: ATENOLOL
     Indication: Blood pressure abnormal
     Dosage: 50 MG, 1X/DAY IN AM
     Route: 065
     Dates: start: 200209
  27. CYCLOBENZAPRINE [Concomitant]
     Active Substance: CYCLOBENZAPRINE
     Indication: Myalgia
     Dosage: 10 MG, 1X/DAY IN PM
     Route: 065
     Dates: start: 200907
  28. DICLOFENAC [Concomitant]
     Active Substance: DICLOFENAC
     Indication: Osteoarthritis
     Dosage: 10 %
     Route: 061
     Dates: start: 201512
  29. EFFEXOR [Concomitant]
     Active Substance: VENLAFAXINE HYDROCHLORIDE
     Indication: Persistent depressive disorder
     Dosage: 150 MG, 1X/DAY BY MORNING (AM)
     Route: 065
  30. EZETIMIBE [Concomitant]
     Active Substance: EZETIMIBE
     Indication: Blood cholesterol abnormal
     Dosage: 10 MG
     Route: 065
     Dates: start: 201802
  31. FOLIC ACID [Concomitant]
     Active Substance: FOLIC ACID
     Indication: Supplementation therapy
     Dosage: 5 MG
     Route: 065
     Dates: start: 201503
  32. IMOVANE [Concomitant]
     Active Substance: ZOPICLONE
     Indication: Sleep disorder
     Dosage: 7.5 MG
     Route: 065
     Dates: start: 200907
  33. LIPITOR [Concomitant]
     Active Substance: ATORVASTATIN CALCIUM
     Dosage: 20 MG, 1X/DAY BY NIGHT (PM)
  34. LYRICA [Concomitant]
     Active Substance: PREGABALIN
     Indication: Pain
     Dosage: 150 MG (450MG) UNKNOWN FREQ.
     Route: 065
  35. LYRICA [Concomitant]
     Active Substance: PREGABALIN
     Indication: Affective disorder
  36. MAXALT [Concomitant]
     Active Substance: RIZATRIPTAN BENZOATE
     Indication: Migraine
     Dosage: 10 MG, AS NEEDED
     Route: 065
     Dates: start: 200209
  37. METHOTREXATE [Concomitant]
     Active Substance: METHOTREXATE
     Indication: Rheumatoid arthritis
     Dosage: 25 MG, WEEKLY (ON SUNDAY)
     Route: 058
  38. PREMARIN [Concomitant]
     Active Substance: ESTROGENS, CONJUGATED
     Indication: Vulvovaginal dryness
     Dosage: UNK, AS NEEDED
     Route: 061
  39. PREMARIN [Concomitant]
     Active Substance: ESTROGENS, CONJUGATED
     Dosage: UNK, AS NEEDED
     Route: 061
  40. PREVNAR 13 [Concomitant]
     Active Substance: PNEUMOCOCCAL 13-VALENT CONJUGATE VACCINE
     Dosage: UNK
  41. SYSTANE BALANCE [Concomitant]
     Active Substance: PROPYLENE GLYCOL
     Indication: Dry eye
     Dosage: UNK
     Route: 065
     Dates: start: 200810
  42. PANTOPRAZOLE MAGNESIUM [Concomitant]
     Active Substance: PANTOPRAZOLE MAGNESIUM
     Indication: Gastrooesophageal reflux disease
     Dosage: 40 MG
     Route: 065
     Dates: start: 201805
  43. VIMOVO [Concomitant]
     Active Substance: ESOMEPRAZOLE MAGNESIUM\NAPROXEN
     Indication: Pain
     Dosage: UNK (500/20 MG)
     Route: 065
     Dates: start: 201403
  44. VITAMIN B12 [Concomitant]
     Active Substance: CYANOCOBALAMIN
     Dosage: UNK
  45. XELJANZ [Concomitant]
     Active Substance: TOFACITINIB CITRATE
     Indication: Rheumatoid arthritis
     Dosage: 1 DF, UNKNOWN DOSE, FREQ AND DISCONTINUATION DATE
     Route: 065

REACTIONS (19)
  - Root canal infection [Recovering/Resolving]
  - Immunodeficiency [Unknown]
  - Drug ineffective [Unknown]
  - Condition aggravated [Not Recovered/Not Resolved]
  - Therapeutic response shortened [Unknown]
  - Feeling hot [Unknown]
  - Hot flush [Unknown]
  - Nasopharyngitis [Unknown]
  - Infection [Unknown]
  - Oral pain [Unknown]
  - Swelling face [Not Recovered/Not Resolved]
  - Psoriasis [Unknown]
  - Stress [Unknown]
  - Weight decreased [Not Recovered/Not Resolved]
  - Blood pressure systolic increased [Unknown]
  - Blood pressure increased [Unknown]
  - Inappropriate schedule of product administration [Unknown]
  - Off label use [Unknown]
  - Intentional product use issue [Unknown]

NARRATIVE: CASE EVENT DATE: 20191109
